FAERS Safety Report 15852482 (Version 1)
Quarter: 2019Q1

REPORT INFORMATION
  Report Type: Spontaneous
  Country: HU (occurrence: HU)
  Receive Date: 20190122
  Receipt Date: 20190122
  Transmission Date: 20190417
  Serious: Yes (Hospitalization, Other)
  Sender: FDA-Public Use
  Company Number: HU-ROCHE-2243174

PATIENT
  Age: 52 Year
  Sex: Female

DRUGS (13)
  1. MABTHERA [Suspect]
     Active Substance: RITUXIMAB
     Indication: SYSTEMIC SCLERODERMA
     Dosage: 4 DOSES IN 4 MONTHS
     Route: 042
     Dates: start: 20171116, end: 20180222
  2. GUTTALAX [Concomitant]
  3. MILURIT [Concomitant]
     Active Substance: ALLOPURINOL
     Route: 065
  4. ROACTEMRA [Suspect]
     Active Substance: TOCILIZUMAB
     Indication: SYSTEMIC SCLERODERMA
     Dosage: TOTALLY 3 INFUSIONS WERE ADMINISTERED
     Route: 042
     Dates: start: 20180803, end: 20180926
  5. CHOLECALCIFEROL [Concomitant]
     Active Substance: CHOLECALCIFEROL
     Route: 065
  6. MYFENAX (HUNGARY) [Concomitant]
     Route: 048
     Dates: start: 201803, end: 201808
  7. ZOLEP [Concomitant]
     Route: 065
  8. MYFENAX (HUNGARY) [Concomitant]
     Route: 048
     Dates: start: 201704, end: 201803
  9. ROACTEMRA [Suspect]
     Active Substance: TOCILIZUMAB
     Route: 042
     Dates: start: 20190104
  10. MEDROL [Concomitant]
     Active Substance: METHYLPREDNISOLONE
     Route: 065
  11. TRENTAL [Concomitant]
     Active Substance: PENTOXIFYLLINE
     Route: 065
  12. ESOMEPRAZOLE. [Concomitant]
     Active Substance: ESOMEPRAZOLE MAGNESIUM
     Route: 065
  13. KALDYUM [Concomitant]
     Active Substance: POTASSIUM CHLORIDE
     Route: 065

REACTIONS (5)
  - Drug ineffective for unapproved indication [Unknown]
  - Intentional product use issue [Unknown]
  - Disease progression [Unknown]
  - Spinal cord infection [Recovered/Resolved with Sequelae]
  - Off label use [Unknown]

NARRATIVE: CASE EVENT DATE: 201804
